FAERS Safety Report 25226851 (Version 2)
Quarter: 2025Q2

REPORT INFORMATION
  Report Type: Spontaneous
  Country: US (occurrence: US)
  Receive Date: 20250422
  Receipt Date: 20250423
  Transmission Date: 20250717
  Serious: Yes (Other)
  Sender: Day One Biopharmaceuticals
  Company Number: US-Day One Biopharmaceuticals Inc.-2025US000548

PATIENT

DRUGS (1)
  1. OJEMDA [Suspect]
     Active Substance: TOVORAFENIB
     Indication: Glioma
     Dosage: 21 ML, WEEKLY
     Route: 048
     Dates: start: 20250220, end: 2025

REACTIONS (2)
  - Surgery [Unknown]
  - Underdose [Unknown]

NARRATIVE: CASE EVENT DATE: 20250313
